FAERS Safety Report 21577262 (Version 1)
Quarter: 2022Q4

REPORT INFORMATION
  Report Type: Spontaneous
  Country: US (occurrence: US)
  Receive Date: 20221110
  Receipt Date: 20221110
  Transmission Date: 20230113
  Serious: No
  Sender: FDA-Public Use
  Company Number: US-ABBVIE-4193129

PATIENT
  Sex: Female

DRUGS (1)
  1. LUPRON DEPOT [Suspect]
     Active Substance: LEUPROLIDE ACETATE
     Indication: Product used for unknown indication
     Dosage: 3.75 MG?FIRST ADMINISTRATION DATE 2016
     Route: 065

REACTIONS (3)
  - Abnormal uterine bleeding [Recovered/Resolved]
  - Product packaging quantity issue [Unknown]
  - Incorrect dose administered [Unknown]
